FAERS Safety Report 5713830-0 (Version None)
Quarter: 2008Q2

REPORT INFORMATION
  Report Type: 
  Country: None (occurrence: None)
  Receive Date: 20080423
  Receipt Date: 20080411
  Transmission Date: 20081010
  Serious: Yes (Hospitalization)
  Sender: FDA-Public Use
  Company Number: GB-RANBAXY-2008RR-14142

PATIENT

DRUGS (8)
  1. IBUPROFEN TABLETS BP 200MG [Suspect]
     Indication: NECK PAIN
     Route: 048
  2. AMOXICILLIN [Concomitant]
     Indication: OTITIS EXTERNA
     Route: 048
  3. BECOTIDE [Concomitant]
     Indication: ASTHMA
     Route: 055
  4. GENTAMICIN [Concomitant]
     Indication: OTITIS EXTERNA
  5. ALBUTEROL [Concomitant]
     Indication: ASTHMA
     Route: 065
  6. PREDNISOLONE [Concomitant]
  7. PENICILLIN [Concomitant]
     Route: 042
  8. PENICILLIN [Concomitant]
     Route: 048

REACTIONS (6)
  - DRUG EFFECT DECREASED [None]
  - EROSIVE DUODENITIS [None]
  - GASTRITIS EROSIVE [None]
  - INTERVERTEBRAL DISCITIS [None]
  - OSTEOMYELITIS [None]
  - UPPER GASTROINTESTINAL HAEMORRHAGE [None]
